FAERS Safety Report 6842196-8 (Version None)
Quarter: 2010Q3

REPORT INFORMATION
  Report Type: 
  Country: None (occurrence: None)
  Receive Date: 20100714
  Receipt Date: 20070906
  Transmission Date: 20110219
  Serious: No
  Sender: FDA-Public Use
  Company Number: US-PFIZER INC-2007061053

PATIENT
  Sex: Male
  Weight: 106.6 kg

DRUGS (1)
  1. CHANTIX [Suspect]
     Dates: start: 20070209, end: 20070309

REACTIONS (1)
  - RASH PRURITIC [None]
